FAERS Safety Report 10315524 (Version 3)
Quarter: 2015Q1

REPORT INFORMATION
  Report Type: Other
  Country: US (occurrence: US)
  Receive Date: 20140719
  Receipt Date: 20150319
  Transmission Date: 20150720
  Serious: Yes (Hospitalization, Other)
  Sender: FDA-Public Use
  Company Number: US-GSKPPD-2014GSK010939

PATIENT
  Age: 53 Year
  Sex: Female
  Weight: 187.5 kg

DRUGS (17)
  1. ZOCOR [Concomitant]
     Active Substance: SIMVASTATIN
     Route: 048
  2. TRAMADOL [Concomitant]
     Active Substance: TRAMADOL
     Route: 048
  3. AVANDIA [Suspect]
     Active Substance: ROSIGLITAZONE MALEATE
     Indication: DIABETES MELLITUS
     Dosage: AVANDIA WAS NOT LISTED AMONG THE PATIENTS DISCHARGE RECORDS.
     Route: 048
  4. INSULIN 70/30 [Concomitant]
     Active Substance: INSULIN HUMAN
     Route: 058
  5. ZOLOFT [Concomitant]
     Active Substance: SERTRALINE HYDROCHLORIDE
     Route: 048
  6. POTASSIUM [Concomitant]
     Active Substance: POTASSIUM
     Route: 048
  7. GLIPIZIDE XL [Concomitant]
     Active Substance: GLIPIZIDE
     Route: 048
  8. ALBUTEROL. [Concomitant]
     Active Substance: ALBUTEROL
     Route: 045
  9. LASIX [Concomitant]
     Active Substance: FUROSEMIDE
     Route: 048
  10. NORVASC [Concomitant]
     Active Substance: AMLODIPINE BESYLATE
     Route: 048
  11. INSULIN 70/30 [Concomitant]
     Active Substance: INSULIN HUMAN
     Route: 058
  12. PRILOSEC [Concomitant]
     Active Substance: OMEPRAZOLE MAGNESIUM
     Route: 048
  13. PLAVIX [Concomitant]
     Active Substance: CLOPIDOGREL BISULFATE
     Route: 048
  14. ZETIA [Concomitant]
     Active Substance: EZETIMIBE
     Route: 048
  15. METOPROLOL [Concomitant]
     Active Substance: METOPROLOL
     Route: 048
  16. LORATADINE. [Concomitant]
     Active Substance: LORATADINE
     Route: 048
  17. COMBIVENT MDI [Concomitant]

REACTIONS (1)
  - Cardiac failure congestive [Recovered/Resolved]

NARRATIVE: CASE EVENT DATE: 20070816
